FAERS Safety Report 9667682 (Version 1)
Quarter: 2013Q4

REPORT INFORMATION
  Report Type: Spontaneous
  Country: US (occurrence: US)
  Receive Date: 20131101
  Receipt Date: 20131101
  Transmission Date: 20140711
  Serious: Yes (Other)
  Sender: FDA-Public Use
  Company Number: US-ORACLE-2012S1000024

PATIENT
  Age: 51 Year
  Sex: Male
  Weight: 85.28 kg

DRUGS (11)
  1. KRYSTEXXA INJECTION [Suspect]
     Indication: GOUT
     Route: 042
     Dates: start: 20120123, end: 20120123
  2. KRYSTEXXA INJECTION [Suspect]
     Indication: GOUT
     Route: 042
     Dates: start: 20120206, end: 20120206
  3. KRYSTEXXA INJECTION [Suspect]
     Indication: GOUT
     Route: 042
     Dates: start: 20120223, end: 20120223
  4. PREDNISONE [Concomitant]
     Indication: GOUT
  5. ALLOPURINOL [Concomitant]
     Indication: GOUT
     Dates: end: 20120122
  6. COLCHICINE [Concomitant]
     Indication: GOUT
  7. VICODIN [Concomitant]
     Indication: PAIN
  8. FOSAMAX [Concomitant]
     Indication: PRODUCT USED FOR UNKNOWN INDICATION
  9. DEXAMETHASONE [Concomitant]
     Indication: PREMEDICATION
     Dates: start: 20120123, end: 20120223
  10. TYLENOL /00020001/ [Concomitant]
     Indication: PREMEDICATION
     Dates: start: 20120123, end: 20120223
  11. BENADRYL /00945501/ [Concomitant]
     Indication: PREMEDICATION
     Dates: start: 20120123, end: 20120223

REACTIONS (2)
  - Infusion related reaction [Recovered/Resolved]
  - Therapeutic response decreased [Unknown]
